FAERS Safety Report 22193691 (Version 1)
Quarter: 2023Q2

REPORT INFORMATION
  Report Type: Spontaneous
  Country: PT (occurrence: PT)
  Receive Date: 20230410
  Receipt Date: 20230410
  Transmission Date: 20230721
  Serious: Yes (Other)
  Sender: FDA-Public Use
  Company Number: None

PATIENT
  Age: 56 Year
  Sex: Female
  Weight: 64 kg

DRUGS (16)
  1. SULFAMETHOXAZOLE\TRIMETHOPRIM [Suspect]
     Active Substance: SULFAMETHOXAZOLE\TRIMETHOPRIM
     Indication: Catheter site infection
     Dosage: 1 OF 12/12 HOURS , FOR ACTIVE INGREDIENT SULFAMETHOXAZOLE THE STRENGTH IS 160 MILLIGRAM . , FOR ACTI
     Dates: start: 20230211, end: 20230214
  2. REXTOL [Concomitant]
     Indication: Product used for unknown indication
  3. Insulina Fiasp [Concomitant]
     Indication: Product used for unknown indication
     Dosage: ACCORDING TO SCHEDULE (CONCRETE DOSAGE SCHEDULE UNKNOWN)
  4. FUROSEMIDE [Concomitant]
     Active Substance: FUROSEMIDE
     Indication: Product used for unknown indication
     Dosage: 80 MILLIGRAM DAILY; 2 PCS FOR BREAKFAST , THERAPY START DATE AND END DATE : NASK ,
  5. IRBESARTAN [Concomitant]
     Active Substance: IRBESARTAN
     Indication: Product used for unknown indication
     Dosage: 1 DOSAGE FORMS DAILY; 1 TABLET AT DINNER
  6. BISACODILO [Concomitant]
     Indication: Product used for unknown indication
     Dosage: 1 OR 2 ,    THERAPY START DATE AND END DATE : NASK , FORM STRENGTH : 5 MG
  7. TROMALYT [Concomitant]
     Active Substance: ASPIRIN
     Indication: Product used for unknown indication
     Dosage: 150 MILLIGRAM DAILY; 1 AT LUNCH
  8. ATORVASTATIN [Concomitant]
     Active Substance: ATORVASTATIN
     Indication: Product used for unknown indication
     Dosage: 10 MILLIGRAM DAILY; 1 AT DINNER
  9. ALOGLIPTIN BENZOATE [Concomitant]
     Active Substance: ALOGLIPTIN BENZOATE
     Indication: Product used for unknown indication
     Dosage: 1 TBSP FOR BREAKFAST
  10. ALLOPURINOL [Concomitant]
     Active Substance: ALLOPURINOL
     Indication: Product used for unknown indication
     Dosage: 100 MILLIGRAM DAILY;  1 FOR BREAKFAST
  11. MIRCERA [Concomitant]
     Active Substance: METHOXY POLYETHYLENE GLYCOL-EPOETIN BETA
     Indication: Product used for unknown indication
     Dosage: 30/30 DAYS (NEXT DOSE 03/21/2023)
  12. INSULIN GLARGINE [Concomitant]
     Active Substance: INSULIN GLARGINE
     Indication: Product used for unknown indication
     Dosage: 20 IU (INTERNATIONAL UNIT) DAILY; 20 IU FOR BREAKFAST
  13. VITAMINS [Concomitant]
     Active Substance: VITAMINS
     Indication: Product used for unknown indication
     Dosage: 1 ON MONDAYS
  14. FOLIC ACID [Concomitant]
     Active Substance: FOLIC ACID
     Indication: Product used for unknown indication
     Dosage: 1 CP ON MONDAYS
  15. BISOPROLOL [Concomitant]
     Active Substance: BISOPROLOL
     Indication: Product used for unknown indication
     Dosage: HALF A TABLET FOR BREAKFAST. STOP IF MAXIMUM TA {110
  16. MOVICOL [Concomitant]
     Active Substance: POLYETHYLENE GLYCOL 3350\POTASSIUM CHLORIDE\SODIUM BICARBONATE\SODIUM CHLORIDE
     Indication: Product used for unknown indication
     Dosage: 1 SACHET IN SOS

REACTIONS (2)
  - Vomiting [Recovered/Resolved]
  - Discomfort [Recovered/Resolved]

NARRATIVE: CASE EVENT DATE: 20230211
